FAERS Safety Report 6221585-9 (Version None)
Quarter: 2009Q2

REPORT INFORMATION
  Report Type: 
  Country: None (occurrence: None)
  Receive Date: 20090610
  Receipt Date: 20090511
  Transmission Date: 20091009
  Serious: Yes (Hospitalization, Other)
  Sender: FDA-Public Use
  Company Number: US-JNJFOC-20090303272

PATIENT
  Sex: Male
  Weight: 125.65 kg

DRUGS (2)
  1. TOPAMAX [Suspect]
     Indication: MIGRAINE PROPHYLAXIS
     Route: 048
  2. VERAPAMIL [Concomitant]
     Indication: BLOOD PRESSURE
     Route: 048

REACTIONS (1)
  - ANGLE CLOSURE GLAUCOMA [None]
